FAERS Safety Report 21126233 (Version 1)
Quarter: 2022Q3

REPORT INFORMATION
  Report Type: Spontaneous
  Country: US (occurrence: None)
  Receive Date: 20220724
  Receipt Date: 20220724
  Transmission Date: 20221027
  Serious: Yes (Other)
  Sender: FDA-Public Use
  Company Number: None

PATIENT
  Age: 53 Year
  Sex: Female

DRUGS (7)
  1. YUVAFEM [Suspect]
     Active Substance: ESTRADIOL HEMIHYDRATE
     Indication: Menopause
     Dosage: FREQUENCY : TWICE A WEEK;?
     Route: 067
     Dates: start: 20191031, end: 20220719
  2. MINERALS\VITAMINS [Concomitant]
     Active Substance: MINERALS\VITAMINS
  3. Vitafusioni Womens multi vitamin gummies [Concomitant]
  4. Meta Mucil fiber gummies [Concomitant]
  5. VITAMIN D3 [Concomitant]
     Active Substance: CHOLECALCIFEROL
  6. RePhresh pro-b probiotics for Women [Concomitant]
  7. Heliocare Ferblock supplement [Concomitant]

REACTIONS (7)
  - Eye swelling [None]
  - Swelling face [None]
  - Swelling [None]
  - Urticaria [None]
  - Rash [None]
  - Skin exfoliation [None]
  - Pruritus [None]

NARRATIVE: CASE EVENT DATE: 20220719
